FAERS Safety Report 7688059-X (Version None)
Quarter: 2011Q3

REPORT INFORMATION
  Report Type: 
  Country: None (occurrence: None)
  Receive Date: 20110817
  Receipt Date: 20110810
  Transmission Date: 20111222
  Serious: Yes (Hospitalization, Other)
  Sender: FDA-Public Use
  Company Number: CHPA2011US10778

PATIENT
  Sex: Male

DRUGS (4)
  1. ST. JOHN'S WORT [Concomitant]
     Dosage: UNK, UNK
  2. MELOXICAM [Concomitant]
     Dosage: UNK, UNK
  3. EXCEDRIN (MIGRAINE) [Concomitant]
     Indication: PAIN
     Dosage: UNK DF, UNK
     Route: 048
  4. EXCEDRIN TENSION HEADACHE [Suspect]
     Indication: HEADACHE
     Dosage: 1 DF, PRN
     Route: 048
     Dates: start: 20060101

REACTIONS (15)
  - BURNING SENSATION [None]
  - DIZZINESS [None]
  - EXOSTOSIS [None]
  - THERAPEUTIC RESPONSE UNEXPECTED [None]
  - PAIN [None]
  - LYMPHADENOPATHY [None]
  - HIP SURGERY [None]
  - PRESYNCOPE [None]
  - PLANTAR FASCIITIS [None]
  - URETHRAL DISORDER [None]
  - PYREXIA [None]
  - HEADACHE [None]
  - OFF LABEL USE [None]
  - ROAD TRAFFIC ACCIDENT [None]
  - AURA [None]
